FAERS Safety Report 16143972 (Version 2)
Quarter: 2019Q2

REPORT INFORMATION
  Report Type: Report from Study
  Country: US (occurrence: US)
  Receive Date: 20190401
  Receipt Date: 20190405
  Transmission Date: 20190711
  Serious: Yes (Hospitalization)
  Sender: FDA-Public Use
  Company Number: US-ACTELION-A-US2017-155368

PATIENT
  Sex: Female
  Weight: 72.56 kg

DRUGS (9)
  1. LETAIRIS [Concomitant]
     Active Substance: AMBRISENTAN
  2. ADCIRCA [Concomitant]
     Active Substance: TADALAFIL
  3. UPTRAVI [Suspect]
     Active Substance: SELEXIPAG
     Dosage: 1400 MCG, BID
     Route: 048
  4. UPTRAVI [Suspect]
     Active Substance: SELEXIPAG
     Dosage: 1200 MCG, BID
     Route: 048
  5. UPTRAVI [Suspect]
     Active Substance: SELEXIPAG
     Indication: PULMONARY ARTERIAL HYPERTENSION
     Dosage: 800 MCG, BID
     Route: 048
  6. REMODULIN [Concomitant]
     Active Substance: TREPROSTINIL
  7. UPTRAVI [Suspect]
     Active Substance: SELEXIPAG
     Dosage: 400 MCG, QD
     Route: 048
  8. ELIQUIS [Concomitant]
     Active Substance: APIXABAN
  9. UPTRAVI [Suspect]
     Active Substance: SELEXIPAG
     Dosage: 600 MCG A.M. AND 400 MCG P.PM.
     Route: 048

REACTIONS (9)
  - Hospitalisation [Unknown]
  - Feeling abnormal [Unknown]
  - Dyspnoea [Unknown]
  - Diarrhoea [Recovering/Resolving]
  - Headache [Unknown]
  - Therapy change [Unknown]
  - Loss of consciousness [Unknown]
  - Food poisoning [Unknown]
  - Migraine [Unknown]
